FAERS Safety Report 22098334 (Version 6)
Quarter: 2023Q4

REPORT INFORMATION
  Report Type: Spontaneous
  Country: US (occurrence: US)
  Receive Date: 20230315
  Receipt Date: 20231213
  Transmission Date: 20240110
  Serious: Yes (Other)
  Sender: FDA-Public Use
  Company Number: US-BRISTOL-MYERS SQUIBB COMPANY-2023-037718

PATIENT
  Age: 74 Year
  Sex: Female

DRUGS (1)
  1. CAMZYOS [Suspect]
     Active Substance: MAVACAMTEN
     Indication: Hypertrophic cardiomyopathy
     Dosage: DOSE : ONE CAPSULE; FREQ : ONCE DAILY
     Route: 048

REACTIONS (6)
  - Cataract [Unknown]
  - Eye pruritus [Unknown]
  - Tremor [Recovering/Resolving]
  - Pruritus allergic [Recovering/Resolving]
  - Anxiety [Recovering/Resolving]
  - Urinary tract infection [Unknown]

NARRATIVE: CASE EVENT DATE: 20230630
